FAERS Safety Report 15171633 (Version 1)
Quarter: 2018Q3

REPORT INFORMATION
  Report Type: Spontaneous
  Country: US (occurrence: US)
  Receive Date: 20180622
  Receipt Date: 20180622
  Transmission Date: 20181010
  Serious: No
  Sender: FDA-Public Use
  Company Number: None

PATIENT
  Sex: Male

DRUGS (1)
  1. ISOSORBIDE MONONITRATE ER [Suspect]
     Active Substance: ISOSORBIDE MONONITRATE

REACTIONS (1)
  - Headache [None]
